FAERS Safety Report 13374597 (Version 1)
Quarter: 2017Q1

REPORT INFORMATION
  Report Type: Spontaneous
  Country: FR (occurrence: FR)
  Receive Date: 20170327
  Receipt Date: 20170327
  Transmission Date: 20170429
  Serious: Yes (Hospitalization, Other)
  Sender: FDA-Public Use
  Company Number: FR-PFIZER INC-2017126543

PATIENT
  Age: 54 Year
  Sex: Male

DRUGS (7)
  1. BACTRIM [Concomitant]
     Active Substance: SULFAMETHOXAZOLE\TRIMETHOPRIM
     Dosage: UNK
  2. LERCAN [Concomitant]
     Active Substance: LERCANIDIPINE
  3. ISENTRESS [Concomitant]
     Active Substance: RALTEGRAVIR POTASSIUM
  4. EMTRIVA [Concomitant]
     Active Substance: EMTRICITABINE
  5. LYRICA [Suspect]
     Active Substance: PREGABALIN
     Indication: CENTRAL PAIN SYNDROME
     Dosage: 150 MG, 3X/DAY
     Dates: start: 20170213, end: 20170223
  6. NORVIR [Concomitant]
     Active Substance: RITONAVIR
  7. DARUNAVIR [Concomitant]
     Active Substance: DARUNAVIR

REACTIONS (9)
  - Tremor [Recovering/Resolving]
  - Chills [Unknown]
  - Condition aggravated [Unknown]
  - Movement disorder [Unknown]
  - Respiratory disorder [Unknown]
  - Neuralgia [Unknown]
  - Hyperhidrosis [Unknown]
  - Body temperature decreased [Unknown]
  - Neck pain [Recovering/Resolving]

NARRATIVE: CASE EVENT DATE: 201702
